FAERS Safety Report 5265684-7 (Version None)
Quarter: 2007Q1

REPORT INFORMATION
  Report Type: 
  Country: None (occurrence: None)
  Receive Date: 20061213
  Receipt Date: 20040309
  Transmission Date: 20070707
  Serious: Yes (Other)
  Sender: FDA-Public Use
  Company Number: 2004UW04814

PATIENT
  Age: 61 Year
  Sex: Male
  Weight: 80.7403 kg

DRUGS (7)
  1. IRESSA [Suspect]
     Dates: start: 20040101
  2. TOPROL-XL [Concomitant]
  3. ASPIRIN [Concomitant]
  4. VITAMINS [Concomitant]
  5. PREVACID [Concomitant]
  6. PREDNISONE [Concomitant]
  7. OXYGEN THERAPY [Concomitant]

REACTIONS (6)
  - AGEUSIA [None]
  - ANOREXIA [None]
  - BONE DISORDER [None]
  - DIARRHOEA [None]
  - DRY SKIN [None]
  - RASH [None]
